FAERS Safety Report 5019997-4 (Version None)
Quarter: 2006Q2

REPORT INFORMATION
  Report Type: 
  Country: None (occurrence: None)
  Receive Date: 20060602
  Receipt Date: 20060524
  Transmission Date: 20061013
  Serious: Yes (Other)
  Sender: FDA-Public Use
  Company Number: 20061052BVD

PATIENT
  Sex: Male
  Weight: 70 kg

DRUGS (1)
  1. VARDENAFIL [Suspect]
     Indication: ERECTILE DYSFUNCTION
     Dosage: ORAL
     Route: 048

REACTIONS (3)
  - ANGIONEUROTIC OEDEMA [None]
  - HYPERSENSITIVITY [None]
  - PHOTOSENSITIVITY REACTION [None]
